FAERS Safety Report 5522975-X (Version None)
Quarter: 2007Q4

REPORT INFORMATION
  Report Type: 
  Country: None (occurrence: None)
  Receive Date: 20071121
  Receipt Date: 20071114
  Transmission Date: 20080405
  Serious: Yes (Other)
  Sender: FDA-Public Use
  Company Number: PHFR2007GB01942

PATIENT
  Age: 53 Year
  Sex: Female

DRUGS (14)
  1. CLOZARIL [Suspect]
     Indication: SCHIZOPHRENIA
     Dosage: 150MG/DAY
     Route: 048
     Dates: start: 20000919
  2. CLOZARIL [Suspect]
     Dosage: 50MG/DAY
     Route: 048
  3. CLOZARIL [Suspect]
     Dosage: 100 MG/DAY
     Route: 048
     Dates: start: 20071004
  4. GLICLAZIDE [Concomitant]
     Route: 065
  5. ROSIGLITAZONE [Concomitant]
     Dosage: 8 MG/DAY
     Route: 048
  6. GLUCOPHAGE [Concomitant]
     Dosage: 500 MG, TID
     Route: 048
  7. SIMVASTATIN [Concomitant]
     Dosage: 80 MG/DAY
     Route: 048
  8. LEVOTHYROXINE SODIUM [Concomitant]
     Route: 065
  9. DESOGESTREL [Concomitant]
     Route: 065
  10. LANSOPRAZOLE [Concomitant]
     Dosage: 15 MG/DAY
     Route: 048
  11. DIAMICRON [Concomitant]
     Dosage: 30 MG/DAY
     Route: 048
  12. ASPIRIN [Concomitant]
     Dosage: 75 MG/DAY
     Route: 048
  13. FERROUS SULFATE TAB [Concomitant]
     Route: 065
  14. CERAZETTE [Concomitant]
     Dosage: 75 MG/DAY
     Route: 065

REACTIONS (2)
  - FULL BLOOD COUNT DECREASED [None]
  - TYPE 2 DIABETES MELLITUS [None]
